FAERS Safety Report 15083672 (Version 2)
Quarter: 2018Q3

REPORT INFORMATION
  Report Type: Spontaneous
  Country: FR (occurrence: FR)
  Receive Date: 20180628
  Receipt Date: 20180817
  Transmission Date: 20181010
  Serious: Yes (Hospitalization)
  Sender: FDA-Public Use
  Company Number: FR-TEVA-2018-FR-918329

PATIENT
  Age: 57 Year
  Sex: Male

DRUGS (18)
  1. ROCEPHINE [Suspect]
     Active Substance: CEFTRIAXONE SODIUM
     Indication: PRODUCT USED FOR UNKNOWN INDICATION
     Dosage: 1000 MILLIGRAM DAILY;
     Route: 042
     Dates: start: 20180330
  2. ZOPHREN [Concomitant]
     Active Substance: ONDANSETRON
     Route: 065
  3. PANTOPRAZOLE [Concomitant]
     Active Substance: PANTOPRAZOLE
     Route: 065
  4. MOVENTIG [Suspect]
     Active Substance: NALOXEGOL OXALATE
     Indication: CONSTIPATION
     Dosage: 1 DOSAGE FORMS DAILY;
     Route: 048
     Dates: start: 20180424, end: 20180425
  5. FLAGYL [Suspect]
     Active Substance: METRONIDAZOLE\METRONIDAZOLE HYDROCHLORIDE
     Indication: LIVER ABSCESS
     Dosage: 1500 MILLIGRAM DAILY;
     Route: 048
     Dates: start: 20180330, end: 20180425
  6. IPRATROPIUM (BROMURE D^) [Concomitant]
     Active Substance: IPRATROPIUM
     Route: 065
  7. TIAPRIDE BASE [Concomitant]
     Route: 065
  8. ACUPAN [Suspect]
     Active Substance: NEFOPAM HYDROCHLORIDE
     Indication: PAIN
     Dosage: NON CONNU
     Route: 042
     Dates: start: 20180329, end: 20180425
  9. ABASAGLAR [Concomitant]
     Active Substance: INSULIN GLARGINE
     Route: 065
  10. RELISTOR [Suspect]
     Active Substance: METHYLNALTREXONE BROMIDE
     Indication: CONSTIPATION
     Dosage: 12 MILLIGRAM DAILY;
     Route: 058
     Dates: start: 20180424, end: 20180424
  11. SALBUTAMOL [Concomitant]
     Active Substance: ALBUTEROL
     Route: 065
  12. ALDACTONE [Concomitant]
     Active Substance: SPIRONOLACTONE
     Route: 065
  13. LINEZOLIDE [Suspect]
     Active Substance: LINEZOLID
     Indication: PRODUCT USED FOR UNKNOWN INDICATION
     Dosage: NOT KNOWN
     Route: 065
     Dates: start: 20180412, end: 20180426
  14. MORPHINE [Suspect]
     Active Substance: MORPHINE
     Indication: PAIN
     Dosage: NON CONNU
     Route: 042
     Dates: start: 20180422, end: 20180424
  15. HUMALOG [Concomitant]
     Active Substance: INSULIN LISPRO
     Route: 065
  16. ACTISKENAN 5 MG, G?LULE [Suspect]
     Active Substance: MORPHINE SULFATE
     Indication: PAIN
     Dosage: 5 MG SI BESOIN
     Route: 048
     Dates: start: 20180410, end: 20180425
  17. SKENAN [Suspect]
     Active Substance: MORPHINE SULFATE
     Indication: PAIN
     Dosage: 60 MILLIGRAM DAILY; ONE MORNING ONE IN THE EVENING
     Route: 048
     Dates: start: 20180411, end: 20180424
  18. LOVENOX [Concomitant]
     Active Substance: ENOXAPARIN SODIUM
     Route: 065

REACTIONS (1)
  - Hallucination, visual [Recovered/Resolved]

NARRATIVE: CASE EVENT DATE: 20180425
